FAERS Safety Report 7457697-1 (Version None)
Quarter: 2011Q2

REPORT INFORMATION
  Report Type: 
  Country: None (occurrence: None)
  Receive Date: 20110504
  Receipt Date: 20110425
  Transmission Date: 20111010
  Serious: Yes (Hospitalization)
  Sender: FDA-Public Use
  Company Number: ES-ALEXION-A201100604

PATIENT
  Sex: Male

DRUGS (3)
  1. FOLIC ACID [Concomitant]
  2. SOLIRIS [Suspect]
     Indication: PAROXYSMAL NOCTURNAL HAEMOGLOBINURIA
     Route: 042
  3. SOLIRIS [Suspect]
     Dosage: 900 MG, Q2W
     Route: 042
     Dates: start: 20100101

REACTIONS (4)
  - SEPTIC SHOCK [None]
  - COAGULOPATHY [None]
  - MENINGOCOCCAL SEPSIS [None]
  - RENAL FAILURE ACUTE [None]
